FAERS Safety Report 11709560 (Version 2)
Quarter: 2015Q4

REPORT INFORMATION
  Report Type: Spontaneous
  Country: US (occurrence: US)
  Receive Date: 20151104
  Receipt Date: 20151110
  Transmission Date: 20160304
  Serious: No
  Sender: FDA-Public Use
  Company Number: US-ELI_LILLY_AND_COMPANY-US201102007195

PATIENT
  Sex: Male

DRUGS (1)
  1. FORTEO [Suspect]
     Active Substance: TERIPARATIDE
     Dosage: UNK, UNKNOWN
     Route: 065

REACTIONS (6)
  - Discomfort [Recovering/Resolving]
  - Sleep disorder due to a general medical condition [Unknown]
  - Musculoskeletal discomfort [Unknown]
  - Dysphagia [Unknown]
  - Intervertebral disc protrusion [Unknown]
  - Back pain [Recovering/Resolving]
